FAERS Safety Report 10201003 (Version 1)
Quarter: 2014Q2

REPORT INFORMATION
  Report Type: Spontaneous
  Country: FR (occurrence: FR)
  Receive Date: 20140528
  Receipt Date: 20140528
  Transmission Date: 20141212
  Serious: Yes (Hospitalization)
  Sender: FDA-Public Use
  Company Number: FR-NOVOPROD-411080

PATIENT
  Age: 60 Year
  Sex: Female
  Weight: 92 kg

DRUGS (12)
  1. VICTOZA [Suspect]
     Indication: PRODUCT USED FOR UNKNOWN INDICATION
     Dosage: 1.8 MG, QD (IN MRG)
     Route: 058
     Dates: start: 201210
  2. ESOMEPRAZOLE [Suspect]
     Indication: PRODUCT USED FOR UNKNOWN INDICATION
     Dosage: 20 MG, QD
     Route: 048
     Dates: start: 201301
  3. FUROSEMIDE [Concomitant]
     Dosage: 20 MG, QD (IN MRG)
     Route: 048
     Dates: start: 201304
  4. CITALOPRAM [Concomitant]
     Dosage: 20 MG, QD (IN MRG)
     Route: 048
     Dates: start: 2011
  5. METFORMINE [Concomitant]
     Dosage: 1000 MG, BID
     Route: 048
     Dates: start: 1998
  6. LANTUS [Concomitant]
     Dosage: 38 IU, QD (AT BED)
     Route: 058
     Dates: start: 201210
  7. COAPROVEL [Concomitant]
     Dosage: 1 DF, QD
     Route: 048
     Dates: start: 2008
  8. ISOPTINE [Concomitant]
     Dosage: 120 MG, BID (MORNING AND EVENING)
     Route: 048
  9. FEROGRAD [Concomitant]
     Dosage: 1 DF, BID (ONE TABLET IN MORNING AND IN EVENING)
     Route: 048
     Dates: start: 201304
  10. KARDEGIC [Concomitant]
     Dosage: 160 MG, QD
     Route: 048
     Dates: start: 201211, end: 201304
  11. ATORVASTATINE                      /01326101/ [Concomitant]
     Dosage: 40 MG IN EVENING
     Route: 065
     Dates: start: 201211
  12. DOLIPRANE [Concomitant]
     Indication: PAIN
     Dosage: 1000 MG
     Route: 065

REACTIONS (3)
  - Bezoar [Unknown]
  - Iron deficiency anaemia [Unknown]
  - Abdominal pain upper [Unknown]
